FAERS Safety Report 10152857 (Version 1)
Quarter: 2014Q2

REPORT INFORMATION
  Report Type: Spontaneous
  Country: US (occurrence: US)
  Receive Date: 20140505
  Receipt Date: 20140505
  Transmission Date: 20141212
  Serious: Yes (Hospitalization)
  Sender: FDA-Public Use
  Company Number: US-ABBVIE-14P-163-1230845-00

PATIENT
  Sex: Male

DRUGS (1)
  1. DEPAKOTE ER [Suspect]
     Indication: EPILEPSY
     Route: 048

REACTIONS (3)
  - Cardio-respiratory arrest [Unknown]
  - Cardio-respiratory arrest [Unknown]
  - Cardio-respiratory arrest [Unknown]
